FAERS Safety Report 16717387 (Version 3)
Quarter: 2019Q4

REPORT INFORMATION
  Report Type: Report from Study
  Country: TH (occurrence: TH)
  Receive Date: 20190819
  Receipt Date: 20191016
  Transmission Date: 20200122
  Serious: Yes (Hospitalization)
  Sender: FDA-Public Use
  Company Number: TH-BAYER-2019-122856

PATIENT
  Sex: Female

DRUGS (4)
  1. STIVARGA [Suspect]
     Active Substance: REGORAFENIB
     Indication: COLORECTAL CANCER
     Dosage: DAILY DOSE 40 MG
     Dates: start: 2019, end: 20190924
  2. STIVARGA [Suspect]
     Active Substance: REGORAFENIB
     Indication: COLORECTAL CANCER
     Dosage: 40 MG, BID
     Dates: start: 20190805, end: 201908
  3. STIVARGA [Suspect]
     Active Substance: REGORAFENIB
     Indication: COLORECTAL CANCER
     Dosage: UNK
     Dates: start: 20190508, end: 2019
  4. STIVARGA [Suspect]
     Active Substance: REGORAFENIB
     Indication: COLORECTAL CANCER
     Dosage: 40 MG, QD
     Route: 048
     Dates: start: 201908, end: 20190807

REACTIONS (11)
  - Vomiting [None]
  - Pain in extremity [None]
  - Dyschezia [Recovering/Resolving]
  - Nephritis [Recovering/Resolving]
  - Somnolence [None]
  - Feeding disorder [None]
  - Haemorrhage [Recovering/Resolving]
  - Drug ineffective [None]
  - Drug hypersensitivity [None]
  - Abdominal distension [Recovering/Resolving]
  - Fatigue [None]

NARRATIVE: CASE EVENT DATE: 20190511
